FAERS Safety Report 5099840-8 (Version None)
Quarter: 2006Q3

REPORT INFORMATION
  Report Type: 
  Country: None (occurrence: None)
  Receive Date: 20060908
  Receipt Date: 20051115
  Transmission Date: 20061208
  Serious: Yes (Other)
  Sender: FDA-Public Use
  Company Number: GBWYE141815NOV05

PATIENT
  Sex: Female
  Weight: 50.5 kg

DRUGS (17)
  1. ENBREL [Suspect]
     Indication: DRUG USE FOR UNKNOWN INDICATION
     Route: 058
     Dates: start: 20040917, end: 20051115
  2. MORPHINE SULFATE [Concomitant]
     Indication: PAIN
     Route: 048
  3. TEMAZEPAM [Concomitant]
     Indication: PAIN
     Dosage: 20MG NIGHTLY
     Route: 048
  4. ISONIAZID [Concomitant]
     Indication: ANTIBIOTIC PROPHYLAXIS
     Dosage: 300MG ONCE DAILUY
     Route: 048
  5. RAMIPRIL [Concomitant]
     Dosage: 5MG
     Route: 048
  6. ALENDRONATE SODIUM [Concomitant]
     Dosage: 70MG WEEKLY
  7. CITALOPRAM HYDROBROMIDE [Concomitant]
     Dosage: 10MG ONCE NIGHTLY
     Route: 048
  8. SIMVASTATIN [Concomitant]
     Dosage: 40MG NIGHTLY
     Route: 048
  9. BECLOMETHASONE DIPROPIONATE [Concomitant]
     Dosage: TWO TWICE DAILY
     Route: 055
  10. MIRTAZAPINE [Concomitant]
     Dosage: 30MG AT NIGHT
  11. BISOPROLOL FUMARATE [Concomitant]
     Dosage: 7.5 MG DAILY
  12. FUROSEMIDE [Concomitant]
     Dosage: 80MG DAILY
  13. ASPIRIN [Concomitant]
     Dosage: 75MG DAILY
  14. PREDNISOLONE [Concomitant]
     Indication: RHEUMATOID ARTHRITIS
     Dosage: 10MG DAILY
  15. FERROUS SULFATE TAB [Concomitant]
     Indication: ANAEMIA
     Dosage: 200MG DAILY
  16. PARACETAMOL [Concomitant]
     Indication: PAIN
     Dosage: 1 GRAM FOUR TIMES A DAY
  17. ORAMORPH SR [Concomitant]
     Indication: PAIN
     Dosage: 10MG/5ML AS NEEDED
     Route: 048

REACTIONS (3)
  - INFECTION [None]
  - NAIL DISORDER [None]
  - VASCULITIS [None]
